FAERS Safety Report 20963389 (Version 1)
Quarter: 2022Q2

REPORT INFORMATION
  Report Type: Spontaneous
  Country: US (occurrence: None)
  Receive Date: 20220615
  Receipt Date: 20220615
  Transmission Date: 20220720
  Serious: Yes (Death)
  Sender: FDA-Public Use
  Company Number: None

PATIENT
  Sex: 0

DRUGS (1)
  1. SCOPOLAMINE HYDROCHLORIDE [Suspect]
     Active Substance: SCOPOLAMINE HYDROCHLORIDE

REACTIONS (1)
  - Death [None]
